FAERS Safety Report 8882342 (Version 2)
Quarter: 2013Q2

REPORT INFORMATION
  Report Type: Spontaneous
  Country: BR (occurrence: BR)
  Receive Date: 20121105
  Receipt Date: 20130401
  Transmission Date: 20140414
  Serious: Yes (Death, Other)
  Sender: FDA-Public Use
  Company Number: BR-BAYER-2012-111776

PATIENT
  Age: 65 Year
  Sex: Male

DRUGS (1)
  1. NEXAVAR [Suspect]
     Indication: NEOPLASM MALIGNANT
     Route: 048

REACTIONS (7)
  - Confusional state [None]
  - Tremor [None]
  - Poor personal hygiene [None]
  - Death [Fatal]
  - Swelling [None]
  - Decreased appetite [None]
  - Incorrect dose administered [None]
